FAERS Safety Report 8967615 (Version 1)
Quarter: 2012Q4

REPORT INFORMATION
  Report Type: 
  Country: CN (occurrence: CN)
  Receive Date: 20121217
  Receipt Date: 20121217
  Transmission Date: 20130627
  Serious: Yes (Hospitalization, Other)
  Sender: FDA-Public Use
  Company Number: CN-009507513-1212CHN005311

PATIENT
  Sex: Female

DRUGS (1)
  1. CLARITYNE [Suspect]
     Indication: ECZEMA
     Route: 048

REACTIONS (1)
  - Cerebral haemorrhage [Unknown]
